FAERS Safety Report 7721728-1 (Version None)
Quarter: 2011Q3

REPORT INFORMATION
  Report Type: 
  Country: None (occurrence: None)
  Receive Date: 20110831
  Receipt Date: 20110824
  Transmission Date: 20111222
  Serious: Yes (Other)
  Sender: FDA-Public Use
  Company Number: DE-GLAXOSMITHKLINE-D0071993A

PATIENT
  Sex: Male
  Weight: 76 kg

DRUGS (2)
  1. VALDOXAN [Concomitant]
     Indication: DEPRESSION
     Dosage: 25MG PER DAY
     Route: 065
     Dates: start: 20110401
  2. LAMICTAL [Suspect]
     Indication: EPILEPSY
     Dosage: 50MG TWICE PER DAY
     Route: 065
     Dates: start: 20100731

REACTIONS (2)
  - EPILEPSY [None]
  - WRONG TECHNIQUE IN DRUG USAGE PROCESS [None]
